FAERS Safety Report 9189352 (Version 6)
Quarter: 2013Q4

REPORT INFORMATION
  Report Type: Spontaneous
  Country: BR (occurrence: BR)
  Receive Date: 20130326
  Receipt Date: 20131008
  Transmission Date: 20140711
  Serious: Yes (Other)
  Sender: FDA-Public Use
  Company Number: PHHY2013BR027805

PATIENT
  Sex: Male
  Weight: 54 kg

DRUGS (9)
  1. FORASEQ [Suspect]
     Indication: COUGH
     Dosage: 2 DF, 2 CAPSULES, DAILY
  2. FORASEQ [Suspect]
     Indication: INFLUENZA
  3. FORASEQ [Suspect]
     Indication: OFF LABEL USE
  4. RIVOTRIL [Concomitant]
     Indication: ANXIETY
     Dosage: 2 MG, QD
     Route: 048
  5. RIVOTRIL [Concomitant]
     Dosage: MORE THAN ONE MEDICATION(PRN)
  6. CARBOLITIUM [Concomitant]
     Indication: BIPOLAR DISORDER
     Dosage: 300 MG, 2-3 TABLETS DAILY
     Route: 048
  7. TORVAL [Concomitant]
     Indication: BIPOLAR DISORDER
     Dosage: 1 TABLET ONCE DAILY
  8. NEORAL [Concomitant]
     Indication: BIPOLAR DISORDER
     Dosage: 50 MG OR 25 MG DAILY
  9. LAMITOR [Concomitant]
     Indication: BIPOLAR DISORDER
     Dosage: 50 MG OR 25 MG DAILY

REACTIONS (8)
  - Bipolar disorder [Recovered/Resolved]
  - Chest discomfort [Recovered/Resolved]
  - Emotional disorder [Unknown]
  - Dyspnoea [Recovered/Resolved]
  - Device malfunction [Unknown]
  - Wrong technique in drug usage process [Unknown]
  - Confusional state [Unknown]
  - Anxiety [Recovered/Resolved]
